FAERS Safety Report 7721226-5 (Version None)
Quarter: 2011Q3

REPORT INFORMATION
  Report Type: 
  Country: None (occurrence: None)
  Receive Date: 20110825
  Receipt Date: 20110816
  Transmission Date: 20111222
  Serious: Yes (Hospitalization)
  Sender: FDA-Public Use
  Company Number: 15953318

PATIENT
  Age: 62 Year
  Sex: Male

DRUGS (4)
  1. PLACEBO [Suspect]
     Indication: EMBOLISM
     Dosage: ORAL
     Route: 048
     Dates: start: 20110304
  2. ENOXAPARIN SODIUM [Suspect]
     Indication: EMBOLISM
  3. APIXABAN [Suspect]
     Indication: EMBOLISM
     Dosage: 10 MILLIGRAM 1 DAY ORAL
     Route: 048
     Dates: start: 20110304
  4. WARFARIN SODIUM [Suspect]
     Indication: EMBOLISM
     Dosage: 4 MILLIGRAM 1 DAY ORAL
     Route: 048
     Dates: start: 20110304

REACTIONS (1)
  - NON-CARDIAC CHEST PAIN [None]
